FAERS Safety Report 5371392-4 (Version None)
Quarter: 2007Q2

REPORT INFORMATION
  Report Type: 
  Country: None (occurrence: None)
  Receive Date: 20070622
  Receipt Date: 20070615
  Transmission Date: 20071010
  Serious: Yes (Other)
  Sender: FDA-Public Use
  Company Number: 2007BI013050

PATIENT
  Age: 66 Year
  Sex: Female

DRUGS (1)
  1. NATALIZUMAB [Suspect]
     Indication: MULTIPLE SCLEROSIS
     Dosage: 300 MG;QM;IV
     Route: 042
     Dates: start: 20070424, end: 20070615

REACTIONS (12)
  - BACK DISORDER [None]
  - DEPRESSION [None]
  - DYSKINESIA [None]
  - EMOTIONAL DISTRESS [None]
  - FATIGUE [None]
  - HAEMATOMA [None]
  - HEPATIC HAEMORRHAGE [None]
  - LIVER DISORDER [None]
  - NUCLEAR MAGNETIC RESONANCE IMAGING ABNORMAL [None]
  - PAIN [None]
  - RETINAL DETACHMENT [None]
  - STRESS [None]
